FAERS Safety Report 17866548 (Version 2)
Quarter: 2020Q2

REPORT INFORMATION
  Report Type: Spontaneous
  Country: US (occurrence: US)
  Receive Date: 20200605
  Receipt Date: 20200617
  Transmission Date: 20200714
  Serious: Yes (Hospitalization)
  Sender: FDA-Public Use
  Company Number: US-PFIZER INC-2020-07879

PATIENT
  Age: 54 Year
  Sex: Male
  Weight: 83.9 kg

DRUGS (11)
  1. MEKTOVI [Suspect]
     Active Substance: BINIMETINIB
     Indication: METASTASIS
     Dosage: 45 MG, 2X/DAY
     Route: 048
  2. BRAFTOVI [Suspect]
     Active Substance: ENCORAFENIB
     Indication: METASTASIS
     Dosage: 450 MG, 1X/DAY
     Route: 048
  3. TRAMADOL. [Concomitant]
     Active Substance: TRAMADOL
     Indication: PAIN
     Dosage: 50 MG, AS NEEDED (TAKE 1 TABLET BY MOUTH EVERY 6 (SIX) HOURS AS NEEDED FOR PAIN)
     Route: 048
     Dates: start: 20190808
  4. BENZOCAINE-MENTHOL [Concomitant]
     Indication: OROPHARYNGEAL PAIN
     Dosage: UNK, AS NEEDED (PLACE 1 LOZENGE INSIDE CHEEK EVERY 2 (TWO) HOURS AS NEEDED )
     Route: 002
     Dates: start: 20200429
  5. PANTOPRAZOLE [Concomitant]
     Active Substance: PANTOPRAZOLE
     Dosage: 40 MG, 2X/DAY (TAKE 1 TABLET BY MOUTH 2 (TWO) TIMES DAILY FOR 7 DAYS)
     Route: 048
     Dates: start: 20200429, end: 20200506
  6. LEVOFLOXACIN. [Concomitant]
     Active Substance: LEVOFLOXACIN
     Dosage: 1.5 DF, DAILY (TAKE 1.5 TABLETS BY MOUTH DAILY FOR 5 DAYS)
     Route: 048
     Dates: start: 20200429, end: 20200504
  7. ALLEGRA [Concomitant]
     Active Substance: FEXOFENADINE HYDROCHLORIDE
     Dosage: 180 MG, DAILY
     Route: 048
  8. NORCO [Concomitant]
     Active Substance: ACETAMINOPHEN\HYDROCODONE BITARTRATE
     Indication: PAIN
     Dosage: UNK, AS NEEDED (TAKE 1-2 TABLETS BY MOUTH EVERY_6 (SIX) HOURS AS NEEDED FOR PAIN)
     Route: 048
     Dates: start: 20200429
  9. LEVETIRACETAM. [Concomitant]
     Active Substance: LEVETIRACETAM
     Dosage: 1000 MG, 2X/DAY
     Route: 048
     Dates: start: 20200429
  10. DEXAMETHASONE. [Concomitant]
     Active Substance: DEXAMETHASONE
     Dosage: 4 MG, DAILY
     Route: 048
     Dates: start: 20200430
  11. TYLENOL [Concomitant]
     Active Substance: ACETAMINOPHEN
     Dosage: UNK

REACTIONS (5)
  - Septic shock [Unknown]
  - Mental status changes [Unknown]
  - Shock haemorrhagic [Unknown]
  - Neoplasm progression [Unknown]
  - Anaemia [Unknown]
